FAERS Safety Report 15893419 (Version 2)
Quarter: 2019Q1

REPORT INFORMATION
  Report Type: Spontaneous
  Country: AU (occurrence: AU)
  Receive Date: 20190130
  Receipt Date: 20190212
  Transmission Date: 20190417
  Serious: Yes (Other)
  Sender: FDA-Public Use
  Company Number: AU-UCBSA-2019002681

PATIENT
  Sex: Female

DRUGS (4)
  1. KEPPRA [Suspect]
     Active Substance: LEVETIRACETAM
     Indication: GENERALISED TONIC-CLONIC SEIZURE
     Dosage: 500 MG, 2X/DAY (BID)
  2. LAMICTAL [Concomitant]
     Active Substance: LAMOTRIGINE
     Indication: PRODUCT USED FOR UNKNOWN INDICATION
  3. KEPPRA [Suspect]
     Active Substance: LEVETIRACETAM
     Indication: JUVENILE MYOCLONIC EPILEPSY
  4. DIASTATIN [Concomitant]
     Indication: PRODUCT USED FOR UNKNOWN INDICATION

REACTIONS (5)
  - Partial seizures [Unknown]
  - Depression [Unknown]
  - Generalised tonic-clonic seizure [Unknown]
  - Weight decreased [Unknown]
  - Fatigue [Unknown]
